FAERS Safety Report 16658780 (Version 6)
Quarter: 2020Q1

REPORT INFORMATION
  Report Type: Report from Study
  Country: US (occurrence: US)
  Receive Date: 20190801
  Receipt Date: 20200212
  Transmission Date: 20200409
  Serious: Yes (Other)
  Sender: FDA-Public Use
  Company Number: US-ACTELION-A-NJ2019-190130

PATIENT
  Sex: Female
  Weight: 58.5 kg

DRUGS (7)
  1. OPSUMIT [Suspect]
     Active Substance: MACITENTAN
     Dosage: 10 MG, QD
     Route: 048
  2. OPSUMIT [Suspect]
     Active Substance: MACITENTAN
     Indication: PULMONARY ARTERIAL HYPERTENSION
     Dosage: 10 MG, QD
     Route: 048
  3. OXYGEN. [Concomitant]
     Active Substance: OXYGEN
  4. ELIQUIS [Concomitant]
     Active Substance: APIXABAN
  5. ADEMPAS [Suspect]
     Active Substance: RIOCIGUAT
     Indication: PRODUCT USED FOR UNKNOWN INDICATION
     Dosage: 1.5 MG
     Route: 065
  6. ADEMPAS [Suspect]
     Active Substance: RIOCIGUAT
     Dosage: 1 MG, TID
     Route: 065
  7. DILTIAZEM. [Concomitant]
     Active Substance: DILTIAZEM

REACTIONS (24)
  - Malaise [Unknown]
  - Renal function test abnormal [Unknown]
  - Sneezing [Unknown]
  - Cardiac failure [Unknown]
  - Nausea [Unknown]
  - Oedema peripheral [Recovering/Resolving]
  - Muscle spasms [Unknown]
  - Insomnia [Unknown]
  - Nasopharyngitis [Unknown]
  - Nasal congestion [Unknown]
  - Renal disorder [Unknown]
  - Renal failure [Unknown]
  - Respiratory failure [Unknown]
  - Hypotension [Not Recovered/Not Resolved]
  - Diarrhoea [Recovered/Resolved]
  - Dyspnoea exertional [Unknown]
  - Hypoacusis [Unknown]
  - Chronic kidney disease [Recovering/Resolving]
  - Cystitis [Unknown]
  - Cough [Unknown]
  - Fatigue [Unknown]
  - Dyspnoea [Unknown]
  - Dehydration [Recovering/Resolving]
  - Nasal dryness [Unknown]
